FAERS Safety Report 18189062 (Version 1)
Quarter: 2020Q3

REPORT INFORMATION
  Report Type: Spontaneous
  Country: FR (occurrence: FR)
  Receive Date: 20200824
  Receipt Date: 20200824
  Transmission Date: 20201103
  Serious: Yes (Hospitalization, Other)
  Sender: FDA-Public Use
  Company Number: FR-BRISTOL-MYERS SQUIBB COMPANY-BMS-2020-066852

PATIENT
  Age: 52 Year
  Sex: Female
  Weight: 71.2 kg

DRUGS (3)
  1. AVASTIN [Suspect]
     Active Substance: BEVACIZUMAB
     Indication: LUNG ADENOCARCINOMA
     Dosage: 10 MILLIGRAM/KILOGRAM, 1 CYCLICAL
     Route: 041
     Dates: start: 20200506, end: 20200520
  2. PACLITAXEL. [Suspect]
     Active Substance: PACLITAXEL
     Indication: LUNG ADENOCARCINOMA
     Dosage: 90 MILLIGRAM/SQ. METER, CYCLICAL
     Route: 041
     Dates: start: 20200506, end: 20200520
  3. OPDIVO [Suspect]
     Active Substance: NIVOLUMAB
     Indication: LUNG ADENOCARCINOMA
     Dosage: 240 MILLIGRAM, 2 WEEK
     Route: 041
     Dates: start: 20191024, end: 20200408

REACTIONS (2)
  - Cholangitis [Recovering/Resolving]
  - Pancreatitis [Recovering/Resolving]

NARRATIVE: CASE EVENT DATE: 20200621
